FAERS Safety Report 12188500 (Version 1)
Quarter: 2016Q1

REPORT INFORMATION
  Report Type: Report from Study
  Country: US (occurrence: US)
  Receive Date: 20160317
  Receipt Date: 20160317
  Transmission Date: 20160526
  Serious: No
  Sender: FDA-Public Use
  Company Number: US-AMGEN-USASL2016030350

PATIENT
  Age: 59 Year
  Sex: Female

DRUGS (2)
  1. ENBREL [Suspect]
     Active Substance: ETANERCEPT
     Indication: PSORIASIS
     Dosage: 50 MG, 2 TIMES/WK
     Route: 065
     Dates: start: 201508, end: 201511
  2. ENBREL [Suspect]
     Active Substance: ETANERCEPT
     Indication: GUTTATE PSORIASIS
     Dosage: 50 MG, QWK
     Route: 065
     Dates: start: 201511

REACTIONS (3)
  - Pruritus [Not Recovered/Not Resolved]
  - Erythema [Not Recovered/Not Resolved]
  - Poor quality sleep [Unknown]

NARRATIVE: CASE EVENT DATE: 2015
